FAERS Safety Report 11976652 (Version 1)
Quarter: 2016Q1

REPORT INFORMATION
  Report Type: Spontaneous
  Country: CA (occurrence: CA)
  Receive Date: 20160129
  Receipt Date: 20160129
  Transmission Date: 20160526
  Serious: Yes (Hospitalization, Disabling)
  Sender: FDA-Public Use
  Company Number: CA-009507513-1601CAN008155

PATIENT
  Sex: Male

DRUGS (1)
  1. TEMODAL [Suspect]
     Active Substance: TEMOZOLOMIDE
     Indication: GLIOBLASTOMA MULTIFORME
     Dosage: 145 MG, DAILY X 5 DAYS
     Route: 048
     Dates: start: 201510, end: 20151211

REACTIONS (2)
  - Adverse event [Recovering/Resolving]
  - Limb discomfort [Unknown]
